FAERS Safety Report 4700630-3 (Version None)
Quarter: 2005Q2

REPORT INFORMATION
  Report Type: 
  Country: None (occurrence: None)
  Receive Date: 20050627
  Receipt Date: 20050531
  Transmission Date: 20051028
  Serious: Yes (Other)
  Sender: FDA-Public Use
  Company Number: US-MERCK-0506USA00089

PATIENT
  Age: 86 Year
  Sex: Female
  Weight: 50 kg

DRUGS (4)
  1. FOSAMAX [Suspect]
     Indication: OSTEOPOROSIS
     Route: 048
     Dates: start: 20050501, end: 20050531
  2. TEMAZEPAM [Concomitant]
     Route: 065
  3. LIPITOR [Concomitant]
     Route: 065
  4. LASIX [Concomitant]
     Route: 065

REACTIONS (3)
  - DRY SKIN [None]
  - ERYTHEMA [None]
  - RASH [None]
